FAERS Safety Report 18054135 (Version 2)
Quarter: 2021Q2

REPORT INFORMATION
  Report Type: Spontaneous
  Country: ES (occurrence: ES)
  Receive Date: 20200722
  Receipt Date: 20210628
  Transmission Date: 20210717
  Serious: Yes (Life-Threatening, Hospitalization)
  Sender: FDA-Public Use
  Company Number: ES-TEVA-2020-ES-1802620

PATIENT
  Age: 63 Year
  Sex: Female

DRUGS (10)
  1. PACLITAXEL. [Suspect]
     Active Substance: PACLITAXEL
     Indication: OVARIAN CANCER
     Dosage: SIX CYCLES
     Route: 065
     Dates: start: 201204, end: 201209
  2. CAELYX [Suspect]
     Active Substance: DOXORUBICIN HYDROCHLORIDE
     Indication: OVARIAN CANCER
     Dosage: SIX CYCLES
     Route: 065
     Dates: start: 201507, end: 201512
  3. TRABECTEDIN [Suspect]
     Active Substance: TRABECTEDIN
     Indication: OVARIAN CANCER
     Dosage: SIX CYCLES
     Route: 065
     Dates: start: 201507, end: 201512
  4. GEMCITABINE. [Suspect]
     Active Substance: GEMCITABINE
     Indication: OVARIAN CANCER
     Dosage: THREE CYCLES
     Route: 065
  5. OLAPARIB. [Suspect]
     Active Substance: OLAPARIB
     Indication: OVARIAN CANCER
     Route: 065
  6. CARBOPLATIN. [Suspect]
     Active Substance: CARBOPLATIN
     Indication: OVARIAN CANCER
     Dosage: SIX CYCLES; AREA UNDER THE CURVE OF 5
     Route: 065
     Dates: start: 201204, end: 201209
  7. CARBOPLATIN. [Suspect]
     Active Substance: CARBOPLATIN
     Dosage: AREA UNDER THE CURVE OF 5; THREE CYCLES
     Route: 065
     Dates: start: 201406, end: 201409
  8. GEMCITABINE. [Suspect]
     Active Substance: GEMCITABINE
     Dosage: THREE CYCLES
     Route: 065
     Dates: start: 201406, end: 201409
  9. CARBOPLATIN. [Suspect]
     Active Substance: CARBOPLATIN
     Dosage: AREA UNDER THE CURVE OF 5; THREE CYCLES
     Route: 065
  10. CARBOPLATIN. [Suspect]
     Active Substance: CARBOPLATIN
     Dosage: AREA UNDER THE CURVE OF 2; WEEKLY CARBOPLATIN MONOTHERAPY
     Route: 065
     Dates: start: 201611, end: 201702

REACTIONS (2)
  - Gastrointestinal infection [Recovered/Resolved]
  - Acute myeloid leukaemia [Unknown]
